FAERS Safety Report 6823784-1 (Version None)
Quarter: 2010Q3

REPORT INFORMATION
  Report Type: 
  Country: None (occurrence: None)
  Receive Date: 20100708
  Receipt Date: 20060905
  Transmission Date: 20110219
  Serious: No
  Sender: FDA-Public Use
  Company Number: US-PFIZER INC-2006109697

PATIENT
  Sex: Male
  Weight: 74.39 kg

DRUGS (8)
  1. CHANTIX [Suspect]
     Dates: start: 20060818
  2. LIPITOR [Concomitant]
  3. FAMOTIDINE [Concomitant]
  4. ACETYLSALICYLIC ACID [Concomitant]
     Dosage: DAILY
  5. PLAVIX [Concomitant]
  6. OMEPRAZOLE [Concomitant]
  7. ALL OTHER THERAPEUTIC PRODUCTS [Concomitant]
  8. ALENDRONIC ACID/COLECALCIFEROL [Concomitant]

REACTIONS (4)
  - INSOMNIA [None]
  - MUSCLE SPASMS [None]
  - SENSORY LOSS [None]
  - URINE FLOW DECREASED [None]
